FAERS Safety Report 26170403 (Version 1)
Quarter: 2025Q4

REPORT INFORMATION
  Report Type: Spontaneous
  Country: EU (occurrence: EU)
  Receive Date: 20251217
  Receipt Date: 20251217
  Transmission Date: 20260118
  Serious: Yes (Hospitalization)
  Sender: TEVA
  Company Number: None

PATIENT
  Age: 67 Year
  Sex: Female
  Weight: 65.6 kg

DRUGS (12)
  1. DIAZEPAM [Suspect]
     Active Substance: DIAZEPAM
     Indication: Anxiety
     Route: 048
     Dates: start: 20250522, end: 20250523
  2. DIAZEPAM [Suspect]
     Active Substance: DIAZEPAM
     Indication: Anxiety
     Route: 048
     Dates: start: 20250603, end: 20250629
  3. DIAZEPAM [Suspect]
     Active Substance: DIAZEPAM
     Indication: Anxiety
     Route: 048
     Dates: start: 20250524, end: 20250602
  4. MORPHINE [Suspect]
     Active Substance: MORPHINE
     Indication: Back pain
     Route: 042
     Dates: start: 20250522, end: 20250525
  5. MORPHINE [Suspect]
     Active Substance: MORPHINE
     Indication: Back pain
     Route: 048
     Dates: start: 20250617, end: 20250623
  6. MORPHINE [Suspect]
     Active Substance: MORPHINE
     Indication: Back pain
     Route: 048
     Dates: start: 20250624, end: 20250801
  7. MORPHINE [Suspect]
     Active Substance: MORPHINE
     Indication: Back pain
     Route: 042
     Dates: start: 20250525, end: 20250617
  8. DOLIPRANE [Suspect]
     Active Substance: ACETAMINOPHEN
     Indication: Back pain
     Route: 048
     Dates: start: 20250523, end: 20250610
  9. TRUXIMA [Concomitant]
     Active Substance: RITUXIMAB-ABBS
     Indication: Rheumatoid arthritis
     Dosage: SOLUTION FOR INFUSION (TO BE DILUTED)
     Route: 048
  10. SIMVASTATIN [Concomitant]
     Active Substance: SIMVASTATIN
     Indication: Dyslipidaemia
     Dosage: FILM-COATED SCORED TABLET
     Route: 048
  11. BISOPROLOL FUMARATE [Concomitant]
     Active Substance: BISOPROLOL FUMARATE
     Indication: Hypertension
     Route: 048
  12. NEFOPAM HYDROCHLORIDE [Suspect]
     Active Substance: NEFOPAM HYDROCHLORIDE
     Indication: Back pain
     Route: 048
     Dates: start: 20250525, end: 20250620

REACTIONS (1)
  - Cholestasis [Recovered/Resolved]

NARRATIVE: CASE EVENT DATE: 20250526
